FAERS Safety Report 12337381 (Version 1)
Quarter: 2016Q2

REPORT INFORMATION
  Report Type: Spontaneous
  Country: US (occurrence: None)
  Receive Date: 20160504
  Receipt Date: 20160504
  Transmission Date: 20160815
  Serious: No
  Sender: FDA-Public Use
  Company Number: None

PATIENT

DRUGS (1)
  1. TICE BCG [Suspect]
     Active Substance: BACILLUS CALMETTE-GUERIN SUBSTRAIN TICE LIVE ANTIGEN
     Route: 043
     Dates: start: 20140102

REACTIONS (3)
  - No adverse event [None]
  - Poor quality drug administered [None]
  - Product contamination [None]

NARRATIVE: CASE EVENT DATE: 20140102
